FAERS Safety Report 7199748-8 (Version None)
Quarter: 2010Q4

REPORT INFORMATION
  Report Type: 
  Country: None (occurrence: None)
  Receive Date: 20101228
  Receipt Date: 20101215
  Transmission Date: 20110411
  Serious: Yes (Disabling, Other)
  Sender: FDA-Public Use
  Company Number: PHHY2010DE19226

PATIENT
  Sex: Female

DRUGS (1)
  1. SYNTOCINON [Suspect]
     Dosage: 2 X TESTS
     Dates: start: 19950101, end: 19950101

REACTIONS (2)
  - CAESAREAN SECTION [None]
  - DRUG EXPOSURE DURING PREGNANCY [None]
